FAERS Safety Report 7987825-0 (Version None)
Quarter: 2011Q4

REPORT INFORMATION
  Report Type: 
  Country: None (occurrence: None)
  Receive Date: 20111216
  Receipt Date: 20110505
  Transmission Date: 20120403
  Serious: No
  Sender: FDA-Public Use
  Company Number: US-BRISTOL-MYERS SQUIBB COMPANY-15721731

PATIENT
  Age: 30 Year
  Sex: Female

DRUGS (4)
  1. VITAMIN D [Concomitant]
  2. ABILIFY [Suspect]
     Dosage: 5 MG ON LAST WEEK
  3. DIOVAN [Concomitant]
  4. VISTARIL [Concomitant]

REACTIONS (1)
  - HICCUPS [None]
